FAERS Safety Report 15546608 (Version 1)
Quarter: 2018Q4

REPORT INFORMATION
  Report Type: Spontaneous
  Country: JP (occurrence: JP)
  Receive Date: 20181024
  Receipt Date: 20181024
  Transmission Date: 20190205
  Serious: Yes (Hospitalization)
  Sender: FDA-Public Use
  Company Number: JP-TEVA-2018-JP-005654J

PATIENT
  Age: 53 Year
  Sex: Female

DRUGS (1)
  1. STOMARCON D TABLET 10MG [Suspect]
     Active Substance: FAMOTIDINE
     Indication: PRODUCT USED FOR UNKNOWN INDICATION
     Route: 065
     Dates: start: 201412, end: 201705

REACTIONS (1)
  - Tubulointerstitial nephritis [Unknown]
